FAERS Safety Report 4454545-9 (Version None)
Quarter: 2004Q3

REPORT INFORMATION
  Report Type: 
  Country: None (occurrence: None)
  Receive Date: 20040826
  Receipt Date: 20040511
  Transmission Date: 20050211
  Serious: No
  Sender: FDA-Public Use
  Company Number: WAES 0405USA01095

PATIENT
  Age: 41 Year
  Sex: Male

DRUGS (3)
  1. ZETIA [Suspect]
     Dosage: PO
     Route: 048
  2. CRESTOR [Concomitant]
  3. LIPITOR [Concomitant]

REACTIONS (3)
  - BLOOD CREATINE PHOSPHOKINASE INCREASED [None]
  - LIPIDS INCREASED [None]
  - MYALGIA [None]
